FAERS Safety Report 16934717 (Version 1)
Quarter: 2019Q4

REPORT INFORMATION
  Report Type: Spontaneous
  Country: US (occurrence: US)
  Receive Date: 20191018
  Receipt Date: 20191018
  Transmission Date: 20200122
  Serious: No
  Sender: FDA-Public Use
  Company Number: US-TEVA-2019-US-1123992

PATIENT
  Sex: Male

DRUGS (2)
  1. BUPRENORPHINE PATCHES [Suspect]
     Active Substance: BUPRENORPHINE
     Indication: ARTHRALGIA
     Dates: start: 201905, end: 20191003
  2. OXYCODONE 5MG [Concomitant]
     Active Substance: OXYCODONE
     Indication: PAIN
     Dosage: FOUR TIMES A DAY

REACTIONS (4)
  - Rash pruritic [Unknown]
  - Blood blister [Unknown]
  - Erythema [Unknown]
  - Product adhesion issue [Unknown]

NARRATIVE: CASE EVENT DATE: 201905
